FAERS Safety Report 24185539 (Version 1)
Quarter: 2024Q3

REPORT INFORMATION
  Report Type: Spontaneous
  Country: GB (occurrence: GB)
  Receive Date: 20240807
  Receipt Date: 20240807
  Transmission Date: 20241016
  Serious: Yes (Hospitalization)
  Sender: MYLAN
  Company Number: GB-MYLANLABS-2024M1069345

PATIENT
  Sex: Male
  Weight: 71.4 kg

DRUGS (1)
  1. CLOZARIL [Suspect]
     Active Substance: CLOZAPINE
     Indication: Schizophrenia
     Dosage: 150 MILLIGRAM, PM (AT NIGHT)
     Route: 048
     Dates: start: 20090529, end: 20240723

REACTIONS (5)
  - Pneumonia [Recovering/Resolving]
  - Sedation [Recovering/Resolving]
  - Dysphagia [Recovering/Resolving]
  - Disease progression [Unknown]
  - Malaise [Unknown]
